FAERS Safety Report 7608273-9 (Version None)
Quarter: 2011Q3

REPORT INFORMATION
  Report Type: 
  Country: None (occurrence: None)
  Receive Date: 20110714
  Receipt Date: 20110711
  Transmission Date: 20111222
  Serious: Yes (Other)
  Sender: FDA-Public Use
  Company Number: US-PFIZER INC-2011156542

PATIENT
  Sex: Female

DRUGS (4)
  1. METHADONE [Concomitant]
     Dosage: UNK
  2. AMITRIPTYLINE HCL [Suspect]
     Dosage: UNK
     Dates: start: 20080101
  3. LYRICA [Suspect]
     Indication: BURNING SENSATION
     Dosage: 100 MG, 1X/DAY
     Route: 048
     Dates: start: 20090101
  4. LYRICA [Suspect]
     Indication: NERVE INJURY
     Dosage: UNK
     Dates: start: 20050101, end: 20090101

REACTIONS (3)
  - WITHDRAWAL SYNDROME [None]
  - COLITIS [None]
  - BLOOD PRESSURE DECREASED [None]
